FAERS Safety Report 8261695-8 (Version None)
Quarter: 2012Q1

REPORT INFORMATION
  Report Type: 
  Country: None (occurrence: None)
  Receive Date: 20120321
  Receipt Date: 20111116
  Transmission Date: 20120608
  Serious: Yes (Other)
  Sender: FDA-Public Use
  Company Number: 2011SP053941

PATIENT
  Age: 46 Year
  Sex: Female

DRUGS (6)
  1. CITALOPRAM HYDROBROMIDE [Concomitant]
  2. REBETOL [Suspect]
     Indication: PRODUCT USED FOR UNKNOWN INDICATION
     Dosage: QD
  3. PEG-INTRON [Suspect]
     Indication: HEPATITIS C
     Dosage: 0.4 ML;QW;SC
     Route: 058
  4. OMEPRAZOLE [Concomitant]
  5. IBUPROFEN (ADVIL) [Concomitant]
  6. ZOVIRAX [Concomitant]

REACTIONS (7)
  - PAIN IN JAW [None]
  - PRURITUS [None]
  - HEADACHE [None]
  - EAR PAIN [None]
  - NECK PAIN [None]
  - SUICIDAL IDEATION [None]
  - TOOTHACHE [None]
